FAERS Safety Report 5693808-6 (Version None)
Quarter: 2008Q2

REPORT INFORMATION
  Report Type: 
  Country: None (occurrence: None)
  Receive Date: 20080403
  Receipt Date: 20080327
  Transmission Date: 20081010
  Serious: Yes (Disabling, Other)
  Sender: FDA-Public Use
  Company Number: HQWYE491106JUN03

PATIENT
  Sex: Female

DRUGS (1)
  1. PREMPHASE 14/14 [Suspect]
     Indication: METRORRHAGIA
     Dosage: 0.625MG/5MG
     Route: 048
     Dates: start: 20000801

REACTIONS (3)
  - BLINDNESS [None]
  - CEREBROVASCULAR ACCIDENT [None]
  - THROMBOSIS [None]
